FAERS Safety Report 16528075 (Version 3)
Quarter: 2019Q3

REPORT INFORMATION
  Report Type: Report from Study
  Country: None (occurrence: ES)
  Receive Date: 20190704
  Receipt Date: 20190712
  Transmission Date: 20191004
  Serious: Yes (Death, Hospitalization, Other)
  Sender: FDA-Public Use
  Company Number: ES-ABBVIE-19K-144-2842080-00

PATIENT
  Age: 69 Year
  Sex: Male
  Weight: 49 kg

DRUGS (4)
  1. RIVOTRIL [Concomitant]
     Active Substance: CLONAZEPAM
     Indication: PRODUCT USED FOR UNKNOWN INDICATION
     Dosage: 5 DROPS, 2.5 MG/ML AT NIGHT
     Route: 048
  2. MADOPAR [Concomitant]
     Active Substance: BENSERAZIDE HYDROCHLORIDE\LEVODOPA
     Indication: PARKINSON^S DISEASE
     Route: 048
     Dates: start: 20190705, end: 20190709
  3. DUODOPA [Suspect]
     Active Substance: CARBIDOPA\LEVODOPA
     Indication: PARKINSON^S DISEASE
     Route: 050
     Dates: start: 20190206, end: 20190705
  4. ADIRO [Concomitant]
     Active Substance: ASPIRIN
     Indication: PRODUCT USED FOR UNKNOWN INDICATION
     Route: 048

REACTIONS (12)
  - Aspiration [Unknown]
  - Device loosening [Recovered/Resolved]
  - Device occlusion [Recovered/Resolved]
  - Somnolence [Recovered/Resolved]
  - Device loosening [Recovered/Resolved]
  - Organ failure [Unknown]
  - Respiratory tract infection [Unknown]
  - Urosepsis [Unknown]
  - Dysphagia [Unknown]
  - Hyperthermia [Recovered/Resolved]
  - Urinary tract infection [Recovering/Resolving]
  - Death [Fatal]

NARRATIVE: CASE EVENT DATE: 2019
